FAERS Safety Report 15281900 (Version 6)
Quarter: 2020Q4

REPORT INFORMATION
  Report Type: Spontaneous
  Country: PL (occurrence: PL)
  Receive Date: 20180815
  Receipt Date: 20201124
  Transmission Date: 20210113
  Serious: Yes (Death, Hospitalization, Other)
  Sender: FDA-Public Use
  Company Number: PL-CELGENEUS-POL-20180705793

PATIENT
  Age: 71 Year
  Sex: Male
  Weight: 70 kg

DRUGS (54)
  1. PRACINOSTAT [Suspect]
     Active Substance: PRACINOSTAT
     Indication: ACUTE MYELOID LEUKAEMIA
     Dosage: 60 MILLIGRAM
     Route: 048
     Dates: start: 20180627, end: 20180711
  2. SALMEX [Concomitant]
     Active Substance: FLUTICASONE PROPIONATE\SALMETEROL XINAFOATE
     Indication: ASTHMA
     Dosage: 550 MICROGRAM
     Route: 055
     Dates: start: 201705
  3. GLUCOSE [Concomitant]
     Active Substance: DEXTROSE
     Indication: ATRIAL FIBRILLATION
     Route: 041
     Dates: start: 20180717
  4. POTASSIUM CHLORIDE. [Concomitant]
     Active Substance: POTASSIUM CHLORIDE
     Indication: SUPRAVENTRICULAR TACHYCARDIA
     Dosage: 40 MILLIEQUIVALENTS
     Route: 041
     Dates: start: 20180801, end: 20180805
  5. MAGNESIUM SULFATE. [Concomitant]
     Active Substance: MAGNESIUM SULFATE
     Indication: ATRIAL FIBRILLATION
     Route: 041
     Dates: start: 20180717
  6. BETALOC [Concomitant]
     Active Substance: METOPROLOL
     Indication: ATRIAL FIBRILLATION
     Route: 040
     Dates: start: 20180718
  7. ZOFRAN [Concomitant]
     Active Substance: ONDANSETRON HYDROCHLORIDE
     Indication: PROPHYLAXIS OF NAUSEA AND VOMITING
     Dosage: 24 MILLIGRAM
     Route: 040
     Dates: start: 20180702, end: 20180703
  8. POTASSIUM CHLORIDE. [Concomitant]
     Active Substance: POTASSIUM CHLORIDE
     Indication: PROPHYLAXIS
     Route: 041
     Dates: start: 20180802
  9. MORPHINI SULFAS WZF [Concomitant]
     Indication: PNEUMONIA
     Dosage: 10 MILLIGRAM
     Route: 058
     Dates: start: 20180727, end: 20180728
  10. SALINE [Concomitant]
     Active Substance: SODIUM CHLORIDE
     Indication: PROPHYLAXIS AGAINST DEHYDRATION
     Dosage: 500 MILLILITER
     Route: 041
     Dates: start: 20180711, end: 20180802
  11. ZOFRAN [Concomitant]
     Active Substance: ONDANSETRON HYDROCHLORIDE
     Indication: NAUSEA
     Dosage: 8 MILLIGRAM
     Route: 040
     Dates: start: 20180627, end: 20180701
  12. BERODUAL [Concomitant]
     Active Substance: FENOTEROL HYDROBROMIDE\IPRATROPIUM BROMIDE
     Indication: ASTHMA
     Dosage: 2 MILLILITER
     Route: 055
     Dates: start: 20180719, end: 20180728
  13. TERTENSIF SR [Concomitant]
     Active Substance: INDAPAMIDE
     Indication: HYPERTENSION
     Dosage: 1.5 MILLIGRAM
     Route: 048
     Dates: start: 2013
  14. PANRAZOL [Concomitant]
     Active Substance: PANTOPRAZOLE SODIUM
     Indication: PROPHYLAXIS
     Dosage: 20 MILLIGRAM
     Route: 048
     Dates: start: 2015, end: 20180702
  15. GLUCOSE [Concomitant]
     Active Substance: DEXTROSE
     Indication: SUPRAVENTRICULAR TACHYCARDIA
     Route: 041
     Dates: start: 20180802
  16. CALCIUM CHLORIDE. [Concomitant]
     Active Substance: CALCIUM CHLORIDE
     Indication: ATRIAL FIBRILLATION
     Route: 041
     Dates: start: 20180717
  17. CORDARONE [Concomitant]
     Active Substance: AMIODARONE HYDROCHLORIDE
     Indication: ATRIAL FIBRILLATION
     Dosage: 300 MG AND 600 MG
     Route: 041
     Dates: start: 20180717
  18. VITACON [Concomitant]
     Indication: INTERNATIONAL NORMALISED RATIO INCREASED
     Route: 040
     Dates: start: 20180802
  19. IPP [Concomitant]
     Indication: GASTROOESOPHAGEAL REFLUX DISEASE
     Dosage: 80 MILLIGRAM
     Route: 040
     Dates: start: 20180702, end: 20180706
  20. KALIPOZ PROLONGATUM [Concomitant]
     Active Substance: POTASSIUM CHLORIDE
     Indication: PROPHYLAXIS
     Dosage: 10 MILLIEQUIVALENTS
     Route: 048
     Dates: start: 20180626, end: 20180706
  21. ZOFRAN [Concomitant]
     Active Substance: ONDANSETRON HYDROCHLORIDE
     Route: 040
     Dates: start: 20180711, end: 20180729
  22. CALCIUM CHLORIDE. [Concomitant]
     Active Substance: CALCIUM CHLORIDE
     Dosage: 20 MILLIGRAM
     Route: 040
     Dates: start: 20180724, end: 20180726
  23. BETALOC [Concomitant]
     Active Substance: METOPROLOL
     Indication: SUPRAVENTRICULAR TACHYCARDIA
     Route: 040
     Dates: start: 20180801
  24. GENSULIN R [Concomitant]
     Active Substance: INSULIN HUMAN
     Indication: ATRIAL FIBRILLATION
     Route: 065
     Dates: start: 20180717
  25. MORPHINI SULFAS WZF [Concomitant]
     Dosage: 5 MILLIGRAM
     Route: 058
     Dates: start: 20180729, end: 20180730
  26. ZINNAT [Concomitant]
     Active Substance: CEFUROXIME
     Indication: ANTIBIOTIC PROPHYLAXIS
     Dosage: 1000 MILLIGRAM
     Route: 048
     Dates: start: 20180706, end: 20180711
  27. ZOFRAN [Concomitant]
     Active Substance: ONDANSETRON HYDROCHLORIDE
     Route: 040
     Dates: start: 20180704, end: 20180706
  28. ATENOLOL. [Concomitant]
     Active Substance: ATENOLOL
     Indication: HYPERTENSION
     Dosage: 25 MILLIGRAM
     Route: 048
     Dates: start: 2013
  29. CALCIUM CHLORIDE. [Concomitant]
     Active Substance: CALCIUM CHLORIDE
     Dosage: 10 MILLIGRAM
     Route: 040
     Dates: start: 20180727
  30. KALIUM CHLORATUM [Concomitant]
     Active Substance: POTASSIUM CHLORIDE
     Indication: ATRIAL FIBRILLATION
     Route: 041
     Dates: start: 20180717
  31. FUROSEMIDE. [Concomitant]
     Active Substance: FUROSEMIDE
     Indication: PULMONARY OEDEMA
     Dosage: 20 MILLIGRAM
     Route: 040
     Dates: start: 20180724, end: 20180725
  32. HEVIRAN [Concomitant]
     Active Substance: ACYCLOVIR
     Indication: ANTIVIRAL PROPHYLAXIS
     Dosage: 1000 MILLIGRAM
     Route: 048
     Dates: start: 20180629, end: 20180706
  33. MILURIT [Concomitant]
     Active Substance: ALLOPURINOL
     Dosage: 600 MILLIGRAM
     Route: 048
     Dates: start: 20180702, end: 20180706
  34. AZACITIDINE. [Suspect]
     Active Substance: AZACITIDINE
     Indication: ACUTE MYELOID LEUKAEMIA
     Dosage: 135 MILLIGRAM
     Route: 058
     Dates: start: 20180627, end: 20180703
  35. CALCIUM CHLORIDE. [Concomitant]
     Active Substance: CALCIUM CHLORIDE
     Indication: HYPOCALCAEMIA
     Route: 041
     Dates: start: 20180720
  36. MAGNESIUM SULFATE. [Concomitant]
     Active Substance: MAGNESIUM SULFATE
     Indication: SUPRAVENTRICULAR TACHYCARDIA
     Dosage: 10 MILLILITER
     Route: 041
     Dates: start: 20180801, end: 20180802
  37. FUROSEMIDE. [Concomitant]
     Active Substance: FUROSEMIDE
     Indication: HYPERTENSION
     Dosage: 40 MILLIGRAM
     Route: 040
     Dates: start: 20180726
  38. AUGMENTIN [Concomitant]
     Active Substance: AMOXICILLIN\CLAVULANATE POTASSIUM
     Indication: ANTIBIOTIC PROPHYLAXIS
     Dosage: 2.4 GRAM
     Route: 040
     Dates: start: 20180711, end: 20180712
  39. MILURIT [Concomitant]
     Active Substance: ALLOPURINOL
     Indication: HYPERURICAEMIA
     Dosage: 300 MILLIGRAM
     Route: 048
     Dates: start: 20180611, end: 20180627
  40. PREDUCTAL MR [Concomitant]
     Active Substance: TRIMETAZIDINE DIHYDROCHLORIDE
     Indication: ISCHAEMIC HEART DISEASE PROPHYLAXIS
     Dosage: 35 MILLIGRAM
     Route: 048
     Dates: start: 20180607, end: 20180710
  41. FUROSEMIDE. [Concomitant]
     Active Substance: FUROSEMIDE
     Dosage: 20 MILLIGRAM
     Route: 040
     Dates: start: 20180727, end: 20180730
  42. MORPHINI SULFAS WZF [Concomitant]
     Indication: PULMONARY OEDEMA
     Dosage: 15 MILLIGRAM
     Route: 058
     Dates: start: 20180724, end: 20180726
  43. OPTILYTE [Concomitant]
     Active Substance: CALCIUM CHLORIDE\MAGNESIUM CHLORIDE\POTASSIUM CHLORIDE\SODIUM ACETATE\SODIUM CHLORIDE\SODIUM CITRATE
     Indication: PROPHYLAXIS AGAINST DEHYDRATION
  44. PHENAZOLINUM [Concomitant]
     Indication: ATRIAL FIBRILLATION
     Dosage: 300 MILLIGRAM
     Route: 040
     Dates: start: 20180718
  45. IPP [Concomitant]
     Dosage: 40 MILLIGRAM
     Route: 040
     Dates: start: 20180711
  46. KALIPOZ PROLONGATUM [Concomitant]
     Active Substance: POTASSIUM CHLORIDE
     Dosage: 20 MILLIEQUIVALENTS
     Route: 048
     Dates: start: 20180707, end: 20180710
  47. MILURIT [Concomitant]
     Active Substance: ALLOPURINOL
     Indication: PROPHYLAXIS
     Dosage: 600 MILLIGRAM
     Route: 048
     Dates: start: 20180628, end: 20180701
  48. METFORMAX [Concomitant]
     Active Substance: METFORMIN HYDROCHLORIDE
     Indication: TYPE 2 DIABETES MELLITUS
     Dosage: 500 MILLIGRAM
     Route: 048
     Dates: start: 201804
  49. AMLOPIN [Concomitant]
     Indication: HYPERTENSION
     Dosage: 5 MILLIGRAM
     Route: 048
     Dates: start: 2013
  50. CONCOR COR [Concomitant]
     Active Substance: BISOPROLOL FUMARATE
     Indication: ATRIAL FIBRILLATION
     Dosage: 5 MILLIGRAM
     Route: 048
     Dates: start: 20180718, end: 20180803
  51. FUROSEMIDE. [Concomitant]
     Active Substance: FUROSEMIDE
     Dosage: 40 MILLIGRAM
     Route: 040
     Dates: start: 20180731, end: 20180802
  52. GENSULIN R [Concomitant]
     Active Substance: INSULIN HUMAN
     Indication: SUPRAVENTRICULAR TACHYCARDIA
     Route: 041
     Dates: start: 20180802
  53. OPTILYTE [Concomitant]
     Active Substance: CALCIUM CHLORIDE\MAGNESIUM CHLORIDE\POTASSIUM CHLORIDE\SODIUM ACETATE\SODIUM CHLORIDE\SODIUM CITRATE
     Indication: SUPRAVENTRICULAR TACHYCARDIA
     Route: 041
     Dates: start: 20180801
  54. DALACIN C [Concomitant]
     Active Substance: CLINDAMYCIN
     Indication: DERMATITIS
     Dosage: 900 MILLIGRAM
     Route: 040
     Dates: start: 20180626, end: 20180703

REACTIONS (2)
  - Pneumonia [Fatal]
  - Pneumonia [Recovered/Resolved]

NARRATIVE: CASE EVENT DATE: 20180703
